FAERS Safety Report 9811558 (Version 1)
Quarter: 2014Q1

REPORT INFORMATION
  Report Type: Spontaneous
  Country: US (occurrence: US)
  Receive Date: 20140110
  Receipt Date: 20140110
  Transmission Date: 20141002
  Serious: Yes (Hospitalization)
  Sender: FDA-Public Use
  Company Number: US-SANOFI-AVENTIS-2013SA033472

PATIENT
  Age: 64 Year
  Sex: Male

DRUGS (17)
  1. PLAVIX [Suspect]
     Indication: PRODUCT USED FOR UNKNOWN INDICATION
     Route: 065
  2. ABILIFY [Concomitant]
  3. TIPRANAVIR [Concomitant]
  4. RITONAVIR [Concomitant]
  5. RALTEGRAVIR [Concomitant]
  6. EFAVIRENZ [Concomitant]
  7. METOPROLOL [Concomitant]
  8. PRAVASTATIN [Concomitant]
  9. CALCIUM [Concomitant]
  10. MULTIVITAMINS [Concomitant]
  11. PANTOPRAZOLE [Concomitant]
  12. SUCRALFATE [Concomitant]
  13. FERROUS SULFATE [Concomitant]
  14. THIAMINE [Concomitant]
  15. CITALOPRAM [Concomitant]
  16. LAMIVUDINE [Concomitant]
  17. INSULIN [Concomitant]

REACTIONS (2)
  - Cerebrovascular accident [Unknown]
  - Dysphagia [Unknown]
